FAERS Safety Report 23798072 (Version 2)
Quarter: 2024Q2

REPORT INFORMATION
  Report Type: Spontaneous
  Country: US (occurrence: US)
  Receive Date: 20240430
  Receipt Date: 20240529
  Transmission Date: 20240716
  Serious: No
  Sender: FDA-Public Use
  Company Number: US-JNJFOC-20240404423

PATIENT
  Age: 56 Year
  Sex: Male

DRUGS (1)
  1. MENS ROGAINE EXTRA STRENGTH [Suspect]
     Active Substance: MINOXIDIL
     Indication: Alopecia
     Dosage: PRODUCT DOSE OR QUANTITY: FOLLOW THE DIRECTIONS
     Route: 061
     Dates: start: 20240330, end: 2024

REACTIONS (4)
  - Application site pain [Recovered/Resolved]
  - Inappropriate schedule of product administration [Unknown]
  - Underdose [Unknown]
  - Alopecia [Unknown]

NARRATIVE: CASE EVENT DATE: 20240330
